FAERS Safety Report 5973026-4 (Version None)
Quarter: 2008Q4

REPORT INFORMATION
  Report Type: 
  Country: None (occurrence: None)
  Receive Date: 20081126
  Receipt Date: 20081126
  Transmission Date: 20090506
  Serious: Yes (Other)
  Sender: FDA-Public Use
  Company Number: None

PATIENT
  Age: 87 Year
  Sex: Female
  Weight: 63 kg

DRUGS (14)
  1. TRANEXAMIC ACID PFIZER [Suspect]
     Indication: CARDIAC OPERATION
     Dosage: 30MG/KG IV LOAD X1 IV BOLUS; 16MG/KG/HR IV INTRAOP X 2HRS IV DRIP
     Route: 040
     Dates: start: 20080515, end: 20080515
  2. TRANEXAMIC ACID PFIZER [Suspect]
     Indication: PROCOAGULANT THERAPY
     Dosage: 30MG/KG IV LOAD X1 IV BOLUS; 16MG/KG/HR IV INTRAOP X 2HRS IV DRIP
     Route: 040
     Dates: start: 20080515, end: 20080515
  3. ETOMIDATE [Concomitant]
  4. ISOFLURANE [Concomitant]
  5. FENTANYL-100 [Concomitant]
  6. VECURONIUM BROMIDE [Concomitant]
  7. MIDAZOLAM HCL [Concomitant]
  8. PROPOFOL [Concomitant]
  9. METOCLOPRAMID [Concomitant]
  10. CEFAZOLIN [Concomitant]
  11. INSULIN [Concomitant]
  12. EPHREDRINE [Concomitant]
  13. DOBUTAMINE HCL [Concomitant]
  14. SODIUM NITROPRUSSIDE [Concomitant]

REACTIONS (2)
  - GRAND MAL CONVULSION [None]
  - POST PROCEDURAL COMPLICATION [None]
